FAERS Safety Report 8886872 (Version 1)
Quarter: 2012Q4

REPORT INFORMATION
  Report Type: 
  Country: US (occurrence: US)
  Receive Date: 20121105
  Receipt Date: 20121105
  Transmission Date: 20130627
  Serious: Yes (Other)
  Sender: FDA-Public Use
  Company Number: US-PFIZER INC-2012272910

PATIENT
  Age: 58 Year
  Sex: Male

DRUGS (7)
  1. LIPITOR [Suspect]
     Dosage: 40 mg, 1 qhs
     Route: 048
  2. SIMVASTATIN [Suspect]
     Dosage: max dose
  3. ASPIRIN [Concomitant]
     Dosage: UNK
  4. FISH OIL [Concomitant]
     Dosage: UNK
  5. HCTZ [Concomitant]
     Dosage: UNK
  6. LISINOPRIL [Concomitant]
     Dosage: UNK
  7. M.V.I. [Concomitant]
     Dosage: UNK

REACTIONS (4)
  - Diabetes mellitus [Unknown]
  - Blood cholesterol increased [Unknown]
  - Blood urea increased [Unknown]
  - Blood triglycerides increased [Unknown]
